FAERS Safety Report 6250056-9 (Version None)
Quarter: 2009Q2

REPORT INFORMATION
  Report Type: 
  Country: None (occurrence: None)
  Receive Date: 20090629
  Receipt Date: 20090623
  Transmission Date: 20091009
  Serious: Yes (Death)
  Sender: FDA-Public Use
  Company Number: AU-MERCK-0810AUS00139

PATIENT
  Age: 79 Year
  Sex: Female

DRUGS (1)
  1. FOSAMAX PLUS D [Suspect]
     Route: 048
     Dates: start: 20040101, end: 20080101

REACTIONS (1)
  - BONE NEOPLASM MALIGNANT [None]
